FAERS Safety Report 6769114-5 (Version None)
Quarter: 2010Q2

REPORT INFORMATION
  Report Type: 
  Country: None (occurrence: None)
  Receive Date: 20100603
  Receipt Date: 20100527
  Transmission Date: 20101027
  Serious: Yes (Other)
  Sender: FDA-Public Use
  Company Number: 2010SP029470

PATIENT
  Sex: Female

DRUGS (1)
  1. NUVARING 15 MCG/120 MCG/ 24          /01603301/) [Suspect]
     Indication: CONTRACEPTION
     Dosage: 1 DF; ; VAG
     Route: 067

REACTIONS (1)
  - PYELONEPHRITIS [None]
